FAERS Safety Report 6616700-9 (Version None)
Quarter: 2010Q1

REPORT INFORMATION
  Report Type: 
  Country: None (occurrence: None)
  Receive Date: 20100305
  Receipt Date: 20100304
  Transmission Date: 20100710
  Serious: Yes (Other)
  Sender: FDA-Public Use
  Company Number: US-ABBOTT-10P-163-0627906-00

PATIENT
  Sex: Female
  Weight: 67.192 kg

DRUGS (18)
  1. HUMIRA [Suspect]
     Indication: CROHN'S DISEASE
     Dosage: LOADING DOSE
     Dates: start: 20091001, end: 20091001
  2. HUMIRA [Suspect]
     Indication: RHEUMATOID ARTHRITIS
     Dosage: EVERY OTHER WEEK ON FRIDAYS
     Route: 058
     Dates: end: 20100112
  3. ROPINIROLE [Concomitant]
     Indication: RESTLESS LEGS SYNDROME
  4. OMEPRAZOLE [Concomitant]
     Indication: DRUG USE FOR UNKNOWN INDICATION
  5. SECTOPHENADINE [Concomitant]
     Indication: DRUG USE FOR UNKNOWN INDICATION
  6. BENTYL [Concomitant]
     Indication: DRUG USE FOR UNKNOWN INDICATION
  7. FLUOXETINE [Concomitant]
     Indication: DRUG USE FOR UNKNOWN INDICATION
  8. POTASSIUM [Concomitant]
     Indication: DRUG USE FOR UNKNOWN INDICATION
  9. COLESTIPOL HYDROCHLORIDE [Concomitant]
     Indication: DRUG USE FOR UNKNOWN INDICATION
  10. LEVOTHYROXINE [Concomitant]
     Indication: DRUG USE FOR UNKNOWN INDICATION
  11. FLUTICASONE [Concomitant]
     Indication: HYPERSENSITIVITY
     Route: 045
  12. BUTABARBITAL [Concomitant]
     Indication: MIGRAINE
  13. VITAMIN B-12 [Concomitant]
     Indication: DRUG USE FOR UNKNOWN INDICATION
     Route: 050
  14. VITAMIN D [Concomitant]
     Indication: DRUG USE FOR UNKNOWN INDICATION
     Dosage: WEEKLY
     Route: 048
  15. STOMA [Concomitant]
     Indication: ANAL FISSURE
     Dosage: ADHESIVE
     Route: 061
  16. LIDOCAINE [Concomitant]
     Indication: ANAL FISSURE
     Route: 061
  17. CORTISONE [Concomitant]
     Indication: ANAL FISSURE
  18. TYLENOL W/ CODEINE NO. 3 [Concomitant]
     Indication: PAIN

REACTIONS (4)
  - CROHN'S DISEASE [None]
  - NEPHROLITHIASIS [None]
  - RENAL PAIN [None]
  - RHEUMATOID ARTHRITIS [None]
